FAERS Safety Report 8672192 (Version 3)
Quarter: 2013Q4

REPORT INFORMATION
  Report Type: Spontaneous
  Country: US (occurrence: US)
  Receive Date: 20120719
  Receipt Date: 20131101
  Transmission Date: 20140711
  Serious: No
  Sender: FDA-Public Use
  Company Number: US-009507513-1207USA002257

PATIENT
  Age: 65 Year
  Sex: Female

DRUGS (2)
  1. CLARINEX [Suspect]
     Dosage: 5 MG, QD
     Route: 048
     Dates: start: 20120706, end: 20120707
  2. LIPITOR [Concomitant]
     Indication: ARTHROPOD BITE
     Dosage: UNK

REACTIONS (5)
  - Dizziness [Recovered/Resolved]
  - Anxiety [Recovered/Resolved]
  - Myalgia [Recovered/Resolved]
  - Nervousness [Unknown]
  - Gastric disorder [Unknown]
